FAERS Safety Report 13524894 (Version 1)
Quarter: 2017Q2

REPORT INFORMATION
  Report Type: Spontaneous
  Country: US (occurrence: US)
  Receive Date: 20170508
  Receipt Date: 20170508
  Transmission Date: 20170830
  Serious: No
  Sender: FDA-Public Use
  Company Number: US-ROCHE-1096969

PATIENT
  Sex: Female

DRUGS (5)
  1. AVASTIN [Suspect]
     Active Substance: BEVACIZUMAB
     Indication: COLON CANCER
     Route: 065
  2. OXALIPLATIN. [Concomitant]
     Active Substance: OXALIPLATIN
  3. CPT-11 [Concomitant]
     Active Substance: IRINOTECAN
  4. ERBITUX [Concomitant]
     Active Substance: CETUXIMAB
  5. XELODA [Concomitant]
     Active Substance: CAPECITABINE

REACTIONS (1)
  - Pleural effusion [Unknown]
